FAERS Safety Report 9987472 (Version 3)
Quarter: 2014Q1

REPORT INFORMATION
  Report Type: Spontaneous
  Country: US (occurrence: US)
  Receive Date: 20140307
  Receipt Date: 20140327
  Transmission Date: 20141002
  Serious: Yes (Other)
  Sender: FDA-Public Use
  Company Number: US-AMGEN-USASP2014009852

PATIENT
  Age: 64 Year
  Sex: Male
  Weight: 83.44 kg

DRUGS (6)
  1. ENBREL [Suspect]
     Indication: RHEUMATOID ARTHRITIS
     Dosage: 50 MG, QWK
     Route: 058
     Dates: start: 20130830
  2. PLAQUENIL                          /00072603/ [Concomitant]
     Dosage: 200 MG, QD
     Route: 048
  3. METHOTREXATE SODIUM [Concomitant]
     Dosage: 20 MG, QWK (2.5 MG, TAKE 8 TABS ONCE WEEK)
  4. FOLIC ACID [Concomitant]
     Dosage: 1 MG, QD
  5. BETAMETHASONE DIPROPIONATE [Concomitant]
     Dosage: UNK, AS NECESSARY
  6. NAPROSYN                           /00256201/ [Concomitant]
     Dosage: 500 MG, BID PRN
     Route: 048

REACTIONS (10)
  - Arrhythmia [Unknown]
  - Transaminases increased [Unknown]
  - Erythema [Not Recovered/Not Resolved]
  - Skin fissures [Not Recovered/Not Resolved]
  - Impaired healing [Not Recovered/Not Resolved]
  - Dry skin [Not Recovered/Not Resolved]
  - Musculoskeletal stiffness [Unknown]
  - Arthralgia [Unknown]
  - Pain in extremity [Unknown]
  - Infected skin ulcer [Not Recovered/Not Resolved]
